FAERS Safety Report 9659357 (Version 4)
Quarter: 2013Q4

REPORT INFORMATION
  Report Type: Spontaneous
  Country: BE (occurrence: BE)
  Receive Date: 20131031
  Receipt Date: 20131108
  Transmission Date: 20140711
  Serious: No
  Sender: FDA-Public Use
  Company Number: BE-009507513-1302BEL006846

PATIENT
  Age: 59 Year
  Sex: Female

DRUGS (6)
  1. PEGINTRON [Suspect]
     Indication: HEPATITIS C
     Dosage: 80 MICROGRAM PER 0.5 ML  TOTAL DAILY DOSE
     Dates: start: 20130108, end: 20130211
  2. PEGINTRON [Suspect]
     Dosage: 80 MICROGRAM PER 0.45 ML TOTAL DAILY DOSE
     Dates: start: 20130212, end: 20130806
  3. PEGINTRON [Suspect]
     Dosage: 80 MICROGRAM PER 0.4 ML TOTAL DAILY DOSE
     Dates: start: 20130807
  4. REBETOL [Suspect]
     Indication: HEPATITIS C
     Dosage: TOTAL DAILY DOSAGE 800 MG
     Route: 048
     Dates: start: 20130108, end: 20130702
  5. REBETOL [Suspect]
     Dosage: TOTAL DAILY DOSAGE 600 MG
     Route: 048
     Dates: start: 2013
  6. VICTRELIS [Suspect]
     Indication: HEPATITIS C
     Dosage: TOTAL DAILY DOSAGE 2400 MILLIGRAM
     Route: 048
     Dates: start: 20130205, end: 20130902

REACTIONS (13)
  - Sensitivity of teeth [Not Recovered/Not Resolved]
  - Loose tooth [Not Recovered/Not Resolved]
  - Weight decreased [Unknown]
  - Alopecia [Recovering/Resolving]
  - Anaemia [Not Recovered/Not Resolved]
  - Asthenia [Not Recovered/Not Resolved]
  - Dry skin [Not Recovered/Not Resolved]
  - Rash [Not Recovered/Not Resolved]
  - Glossodynia [Recovered/Resolved]
  - Dysgeusia [Recovered/Resolved]
  - Heart rate irregular [Recovered/Resolved]
  - Thrombocytopenia [Unknown]
  - Neutropenia [Unknown]
